FAERS Safety Report 5153649-5 (Version None)
Quarter: 2006Q4

REPORT INFORMATION
  Report Type: 
  Country: None (occurrence: None)
  Receive Date: 20061114
  Receipt Date: 20061101
  Transmission Date: 20070319
  Serious: Yes (Death, Life-Threatening, Hospitalization, Other)
  Sender: FDA-Public Use
  Company Number: 2006085410

PATIENT
  Age: 26 Year
  Sex: Female

DRUGS (13)
  1. SUTENT [Suspect]
     Indication: RENAL CELL CARCINOMA STAGE UNSPECIFIED
     Dosage: 50 MG (50 MG, 1 IN 1 D), ORAL
     Route: 048
     Dates: start: 20060630, end: 20060724
  2. DEXAMETHASONE TAB [Concomitant]
  3. ALLOPURINOL [Concomitant]
  4. OXETACAINE (OXETACAINE) [Concomitant]
  5. NORETHINDRONE ACETATE [Concomitant]
  6. SALBUTAMOL (SALBUTAMOL) [Concomitant]
  7. MULTIVITAMIN [Concomitant]
  8. ZOPICLONE (ZOPICLONE) [Concomitant]
  9. CIPROFLOXACIN [Concomitant]
  10. METRONIDAZOLE [Concomitant]
  11. ACETAMINOPHEN [Concomitant]
  12. ORAMORPH SR [Concomitant]
  13. MORPHINE SULFATE [Concomitant]

REACTIONS (10)
  - CARDIO-RESPIRATORY ARREST [None]
  - GENERAL PHYSICAL HEALTH DETERIORATION [None]
  - LOWER RESPIRATORY TRACT INFECTION [None]
  - LYMPHADENOPATHY [None]
  - LYMPHANGITIS [None]
  - METASTASES TO LIVER [None]
  - METASTASES TO LUNG [None]
  - METASTASES TO SPLEEN [None]
  - PULMONARY HAEMORRHAGE [None]
  - PULMONARY OEDEMA [None]
